FAERS Safety Report 12876869 (Version 1)
Quarter: 2016Q4

REPORT INFORMATION
  Report Type: Spontaneous
  Country: US (occurrence: US)
  Receive Date: 20161022
  Receipt Date: 20161022
  Transmission Date: 20170207
  Serious: Yes (Other)
  Sender: FDA-Public Use
  Company Number: None

PATIENT
  Age: 69 Year
  Sex: Female
  Weight: 78.75 kg

DRUGS (1)
  1. HYOSCYAMINE. [Suspect]
     Active Substance: HYOSCYAMINE
     Indication: GASTROINTESTINAL DISORDER
     Route: 048

REACTIONS (5)
  - Speech disorder [None]
  - Buccal mucosal roughening [None]
  - Dry mouth [None]
  - Tongue dry [None]
  - Plicated tongue [None]

NARRATIVE: CASE EVENT DATE: 20160913
